FAERS Safety Report 6901947-4 (Version None)
Quarter: 2010Q3

REPORT INFORMATION
  Report Type: 
  Country: None (occurrence: None)
  Receive Date: 20100803
  Receipt Date: 20080404
  Transmission Date: 20110219
  Serious: No
  Sender: FDA-Public Use
  Company Number: US-PFIZER INC-2008027500

PATIENT
  Sex: Female
  Weight: 86.4 kg

DRUGS (6)
  1. LYRICA [Suspect]
     Indication: FIBROMYALGIA
     Dates: start: 20080310
  2. WARFARIN SODIUM [Concomitant]
  3. METOPROLOL [Concomitant]
  4. VALSARTAN [Concomitant]
  5. PAXIL [Concomitant]
  6. ELAVIL [Concomitant]

REACTIONS (2)
  - DRUG DISPENSING ERROR [None]
  - DRUG EFFECT DECREASED [None]
